FAERS Safety Report 23653584 (Version 3)
Quarter: 2024Q2

REPORT INFORMATION
  Report Type: Spontaneous
  Country: US (occurrence: US)
  Receive Date: 20240320
  Receipt Date: 20240408
  Transmission Date: 20240716
  Serious: Yes (Hospitalization)
  Sender: FDA-Public Use
  Company Number: US-BIOVITRUM-2024-US-004253

PATIENT
  Age: 12 Month
  Sex: Female

DRUGS (1)
  1. SYNAGIS [Suspect]
     Active Substance: PALIVIZUMAB
     Indication: Pulmonary hypertension
     Dosage: 15 MG/KG EVERY MONTH
     Route: 030
     Dates: start: 20231129

REACTIONS (2)
  - Respiratory syncytial virus infection [Recovered/Resolved]
  - Intentional product misuse [Unknown]

NARRATIVE: CASE EVENT DATE: 20231129
